FAERS Safety Report 15785754 (Version 1)
Quarter: 2019Q1

REPORT INFORMATION
  Report Type: Spontaneous
  Country: US (occurrence: US)
  Receive Date: 20190101
  Receipt Date: 20190101
  Transmission Date: 20190417
  Serious: Yes (Other)
  Sender: FDA-Public Use
  Company Number: None

PATIENT
  Age: 54 Year
  Sex: Female
  Weight: 67.5 kg

DRUGS (1)
  1. ATOVAQUONE AND PROGUANIL HYDROCHLORIDE TABLETS [Suspect]
     Active Substance: ATOVAQUONE\PROGUANIL HYDROCHLORIDE
     Indication: ANTI-INFECTIVE THERAPY
     Dosage: ?          QUANTITY:23 TABLET(S);?
     Route: 048
     Dates: start: 20190101, end: 20190101

REACTIONS (5)
  - Vomiting [None]
  - Asthenia [None]
  - Diarrhoea [None]
  - Dizziness [None]
  - Cold sweat [None]
